FAERS Safety Report 9761565 (Version 3)
Quarter: 2014Q1

REPORT INFORMATION
  Report Type: Spontaneous
  Country: US (occurrence: US)
  Receive Date: 20131216
  Receipt Date: 20140101
  Transmission Date: 20141002
  Serious: Yes (Other)
  Sender: FDA-Public Use
  Company Number: US-BRISTOL-MYERS SQUIBB COMPANY-19813849

PATIENT
  Age: 29 Year
  Sex: Female

DRUGS (3)
  1. COUMADIN [Suspect]
     Indication: ANTIPHOSPHOLIPID SYNDROME
     Dosage: ONGOING
     Route: 048
     Dates: start: 200803
  2. CELLCEPT [Suspect]
     Indication: SYSTEMIC LUPUS ERYTHEMATOSUS
     Dosage: TOTAL DOSE 1000MG DAILY?STARTED AGAIN IN DEC 2009
     Route: 048
     Dates: start: 201106, end: 20131025
  3. CELLCEPT [Suspect]
     Indication: NEPHRITIS
     Dosage: TOTAL DOSE 1000MG DAILY?STARTED AGAIN IN DEC 2009
     Route: 048
     Dates: start: 201106, end: 20131025

REACTIONS (3)
  - Abortion spontaneous [Unknown]
  - Glomerulonephritis [Unknown]
  - Pregnancy [Recovered/Resolved]
